FAERS Safety Report 4349026-7 (Version None)
Quarter: 2004Q2

REPORT INFORMATION
  Report Type: 
  Country: None (occurrence: None)
  Receive Date: 20040422
  Receipt Date: 20040414
  Transmission Date: 20050107
  Serious: Yes (Other)
  Sender: FDA-Public Use
  Company Number: 200410267BCA

PATIENT
  Age: 69 Year
  Sex: Male

DRUGS (1)
  1. PLASBUMIN-25 [Suspect]
     Dosage: INTRAVENOUS
     Route: 042
     Dates: start: 19961128

REACTIONS (1)
  - HEPATITIS C VIRUS [None]
